FAERS Safety Report 4930726-2 (Version None)
Quarter: 2006Q1

REPORT INFORMATION
  Report Type: 
  Country: None (occurrence: None)
  Receive Date: 20060227
  Receipt Date: 20060218
  Transmission Date: 20060701
  Serious: Yes (Hospitalization, Disabling, Other)
  Sender: FDA-Public Use
  Company Number: 2006024123

PATIENT
  Age: 34 Year
  Sex: Male
  Weight: 113.3993 kg

DRUGS (9)
  1. GEODON [Suspect]
     Indication: SCHIZOPHRENIA
     Dosage: 160 MG (80 MG)
     Dates: start: 20050801
  2. LITHIUM [Suspect]
     Indication: ILL-DEFINED DISORDER
     Dates: start: 20050801, end: 20060201
  3. ZYPREXA [Suspect]
     Indication: SCHIZOPHRENIA
     Dates: end: 20050801
  4. LAMICTAL [Concomitant]
  5. ATIVAN [Concomitant]
  6. AMBIEN [Concomitant]
  7. LIPITOR [Concomitant]
  8. ASPIRIN [Concomitant]
  9. VITAMINS (VITAMINS) [Concomitant]

REACTIONS (12)
  - APHASIA [None]
  - BRAIN DAMAGE [None]
  - CONFUSIONAL STATE [None]
  - DISORIENTATION [None]
  - DYSARTHRIA [None]
  - INSOMNIA [None]
  - MOOD SWINGS [None]
  - ORAL INTAKE REDUCED [None]
  - OVERDOSE [None]
  - THERAPY NON-RESPONDER [None]
  - TREMOR [None]
  - URINARY TRACT INFECTION [None]
